FAERS Safety Report 8359254-1 (Version None)
Quarter: 2012Q2

REPORT INFORMATION
  Report Type: 
  Country: None (occurrence: None)
  Receive Date: 20120514
  Receipt Date: 20120514
  Transmission Date: 20120825
  Serious: Yes (Disabling)
  Sender: FDA-Public Use
  Company Number: None

PATIENT
  Age: 62 Year
  Sex: Male
  Weight: 72.5755 kg

DRUGS (1)
  1. PROPECIA [Suspect]
     Indication: ANDROGENETIC ALOPECIA
     Dosage: 1 TABLET ONCE DAILY PO
     Route: 048
     Dates: start: 20110401, end: 20110501

REACTIONS (3)
  - EJACULATION DISORDER [None]
  - ERECTILE DYSFUNCTION [None]
  - LOSS OF LIBIDO [None]
